FAERS Safety Report 24981064 (Version 1)
Quarter: 2025Q1

REPORT INFORMATION
  Report Type: Spontaneous
  Country: US (occurrence: US)
  Receive Date: 20250218
  Receipt Date: 20250218
  Transmission Date: 20250408
  Serious: No
  Sender: MERZ
  Company Number: US-MERZ PHARMACEUTICALS, LLC-ACO_176848_2024

PATIENT
  Age: 78 Year
  Sex: Female

DRUGS (10)
  1. INBRIJA [Suspect]
     Active Substance: LEVODOPA
     Indication: Parkinson^s disease
     Dates: start: 20240321
  2. INBRIJA [Suspect]
     Active Substance: LEVODOPA
     Indication: On and off phenomenon
     Dates: start: 20240321
  3. INBRIJA [Suspect]
     Active Substance: LEVODOPA
     Dates: start: 202406
  4. CARBIDOPA\LEVODOPA [Concomitant]
     Active Substance: CARBIDOPA\LEVODOPA
     Indication: Product used for unknown indication
     Dosage: 0.5 DOSAGE FORM, TID (25/100 MILLIGRAM)
     Route: 065
  5. CARBIDOPA\LEVODOPA [Concomitant]
     Active Substance: CARBIDOPA\LEVODOPA
     Dosage: 1 DOSAGE FORM, QD (25/100 MILLIGRAM)
     Route: 065
  6. AMANTADINE [Concomitant]
     Active Substance: AMANTADINE
     Indication: Product used for unknown indication
     Dosage: 1 DOSAGE FORM (100 MILLIGRAM), BID
     Route: 065
  7. PRAMIPEXOLE [Concomitant]
     Active Substance: PRAMIPEXOLE
     Indication: Product used for unknown indication
     Dosage: 1 MILLIIGRAM, 0.25 DOSAGE FORM, BID
     Route: 065
  8. PRAMIPEXOLE [Concomitant]
     Active Substance: PRAMIPEXOLE
     Dosage: 1 MILLIGRAM, 0.5 DOSAGE FORM, BID
     Route: 065
  9. RYTARY [Concomitant]
     Active Substance: CARBIDOPA\LEVODOPA
     Indication: Product used for unknown indication
     Dosage: 145 MILLIGRAM, 1 DOSAGE FORM, TID
     Route: 065
  10. RYTARY [Concomitant]
     Active Substance: CARBIDOPA\LEVODOPA
     Dosage: 95 MILLIGRAM, 1 DOSAGE FORM, TID
     Route: 065

REACTIONS (6)
  - Throat irritation [Unknown]
  - Device issue [Not Recovered/Not Resolved]
  - Expulsion of medication [Unknown]
  - Intentional underdose [Not Recovered/Not Resolved]
  - Product residue present [Unknown]
  - Cough [Unknown]

NARRATIVE: CASE EVENT DATE: 20240321
